FAERS Safety Report 5363159-8 (Version None)
Quarter: 2007Q2

REPORT INFORMATION
  Report Type: 
  Country: None (occurrence: None)
  Receive Date: 20070620
  Receipt Date: 20070608
  Transmission Date: 20071010
  Serious: Yes (Other)
  Sender: FDA-Public Use
  Company Number: PHBS2007BR09697

PATIENT
  Age: 12 Year
  Sex: Male
  Weight: 53 kg

DRUGS (5)
  1. RITALIN [Suspect]
     Indication: ATTENTION DEFICIT/HYPERACTIVITY DISORDER
     Dosage: 10 MG, TID
     Route: 048
  2. RITALIN LA [Suspect]
     Indication: ATTENTION DEFICIT/HYPERACTIVITY DISORDER
     Dosage: 30 MG/DAY
     Route: 048
  3. TEGRETOL [Suspect]
     Indication: CONVULSION
     Route: 048
  4. TRILEPTAL [Suspect]
     Indication: CONVULSION
     Dosage: 3 TABLETS/DAY (900 MG/DAY)
     Route: 048
  5. DEPAKENE [Concomitant]
     Indication: ATTENTION DEFICIT/HYPERACTIVITY DISORDER
     Route: 065

REACTIONS (12)
  - AGITATION [None]
  - ANOREXIA [None]
  - BLOOD PRESSURE DECREASED [None]
  - CONVULSION [None]
  - DRUG INEFFECTIVE [None]
  - DRUG INTERACTION [None]
  - EYE ROLLING [None]
  - IRRITABILITY [None]
  - NERVOUSNESS [None]
  - TREMOR [None]
  - VOMITING [None]
  - WEIGHT DECREASED [None]
